FAERS Safety Report 16557451 (Version 1)
Quarter: 2019Q3

REPORT INFORMATION
  Report Type: Spontaneous
  Country: CN (occurrence: CN)
  Receive Date: 20190711
  Receipt Date: 20190711
  Transmission Date: 20191004
  Serious: Yes (Hospitalization)
  Sender: FDA-Public Use
  Company Number: CN-PFIZER INC-2019292348

PATIENT
  Age: 39 Year
  Sex: Male
  Weight: 65 kg

DRUGS (3)
  1. CLEXANE [Suspect]
     Active Substance: ENOXAPARIN SODIUM
     Indication: DEEP VEIN THROMBOSIS
     Dosage: 4000 IU, 1X/DAY
     Route: 058
     Dates: start: 20190619, end: 20190624
  2. CELEBREX [Suspect]
     Active Substance: CELECOXIB
     Indication: PAIN
     Dosage: 0.2 G, 1X/DAY
     Route: 048
     Dates: start: 20190619, end: 20190623
  3. XUESHUANTONG [Suspect]
     Active Substance: HERBALS
     Indication: DEEP VEIN THROMBOSIS
     Dosage: 0.5 G, 1X/DAY
     Route: 041
     Dates: start: 20190619, end: 20190622

REACTIONS (2)
  - Erythema multiforme [Recovering/Resolving]
  - Purpura [Recovering/Resolving]

NARRATIVE: CASE EVENT DATE: 20190622
